FAERS Safety Report 10096332 (Version 2)
Quarter: 2014Q2

REPORT INFORMATION
  Report Type: Spontaneous
  Country: US (occurrence: US)
  Receive Date: 20140422
  Receipt Date: 20140422
  Transmission Date: 20141212
  Serious: No
  Sender: FDA-Public Use
  Company Number: US-GILEAD-2012-0060088

PATIENT
  Sex: Female

DRUGS (6)
  1. LETAIRIS [Suspect]
     Indication: PULMONARY HYPERTENSION
     Dosage: 5 MG, UNK
     Route: 048
     Dates: start: 20120223, end: 20120808
  2. COUMADIN                           /00014802/ [Concomitant]
  3. LASIX                              /00032601/ [Concomitant]
  4. KLONOPIN [Concomitant]
  5. LISINOPRIL [Concomitant]
  6. KCL [Concomitant]

REACTIONS (5)
  - Hypoacusis [Recovered/Resolved]
  - Hearing impaired [Recovered/Resolved]
  - Ear discomfort [Recovered/Resolved]
  - Ear disorder [Unknown]
  - Nasal congestion [Unknown]
